FAERS Safety Report 5756401-2 (Version None)
Quarter: 2008Q2

REPORT INFORMATION
  Report Type: 
  Country: None (occurrence: None)
  Receive Date: 20080603
  Receipt Date: 20080502
  Transmission Date: 20081010
  Serious: No
  Sender: FDA-Public Use
  Company Number: US-BAYER-200813503NA

PATIENT
  Age: 54 Year
  Sex: Female
  Weight: 73 kg

DRUGS (2)
  1. MIRENA [Suspect]
     Indication: CONTRACEPTION
     Route: 015
     Dates: start: 20070401
  2. THYROID TAB [Concomitant]
     Indication: HYPOTHYROIDISM

REACTIONS (2)
  - INFECTION [None]
  - VAGINAL HAEMORRHAGE [None]
